FAERS Safety Report 14389118 (Version 2)
Quarter: 2018Q3

REPORT INFORMATION
  Report Type: Spontaneous
  Country: US (occurrence: US)
  Receive Date: 20180115
  Receipt Date: 20180730
  Transmission Date: 20181010
  Serious: Yes (Other)
  Sender: FDA-Public Use
  Company Number: US-SA-2017SA232887

PATIENT
  Age: 68 Year
  Sex: Female
  Weight: 71.66 kg

DRUGS (4)
  1. DOXORUBICIN [Concomitant]
     Active Substance: DOXORUBICIN
  2. TAXOTERE [Suspect]
     Active Substance: DOCETAXEL
     Indication: BREAST CANCER
     Dosage: UNK UNK,Q3W
     Route: 042
     Dates: start: 20100329, end: 20100329
  3. CYCLOPHOSPHAMIDE. [Concomitant]
     Active Substance: CYCLOPHOSPHAMIDE
  4. TAXOTERE [Suspect]
     Active Substance: DOCETAXEL
     Dosage: UNK UNK,Q3W
     Route: 042
     Dates: start: 20100601, end: 20100601

REACTIONS (6)
  - Pain [Unknown]
  - Alopecia [Recovering/Resolving]
  - Anxiety [Unknown]
  - Impaired quality of life [Unknown]
  - Psychological trauma [Unknown]
  - Emotional distress [Unknown]

NARRATIVE: CASE EVENT DATE: 201012
